FAERS Safety Report 25494319 (Version 1)
Quarter: 2025Q2

REPORT INFORMATION
  Report Type: Spontaneous
  Country: KR (occurrence: KR)
  Receive Date: 20250630
  Receipt Date: 20250630
  Transmission Date: 20250716
  Serious: Yes (Other)
  Sender: MYLAN
  Company Number: KR-MYLANLABS-2025M1054640

PATIENT
  Sex: Female
  Weight: 54 kg

DRUGS (12)
  1. CELEBREX [Suspect]
     Active Substance: CELECOXIB
     Indication: Breast cancer in situ
     Dosage: 1 DOSAGE FORM, BID
     Dates: start: 20230117
  2. CELEBREX [Suspect]
     Active Substance: CELECOXIB
     Dosage: 1 DOSAGE FORM, BID
     Route: 065
     Dates: start: 20230117
  3. CELEBREX [Suspect]
     Active Substance: CELECOXIB
     Dosage: 1 DOSAGE FORM, BID
     Route: 065
     Dates: start: 20230117
  4. CELEBREX [Suspect]
     Active Substance: CELECOXIB
     Dosage: 1 DOSAGE FORM, BID
     Dates: start: 20230117
  5. REBAMIPIDE [Suspect]
     Active Substance: REBAMIPIDE
     Indication: Breast cancer in situ
     Dosage: 1 DOSAGE FORM, TID
     Dates: start: 20230117
  6. REBAMIPIDE [Suspect]
     Active Substance: REBAMIPIDE
     Dosage: 1 DOSAGE FORM, TID
     Route: 065
     Dates: start: 20230117
  7. REBAMIPIDE [Suspect]
     Active Substance: REBAMIPIDE
     Dosage: 1 DOSAGE FORM, TID
     Route: 065
     Dates: start: 20230117
  8. REBAMIPIDE [Suspect]
     Active Substance: REBAMIPIDE
     Dosage: 1 DOSAGE FORM, TID
     Dates: start: 20230117
  9. ORPHENADRINE CITRATE [Suspect]
     Active Substance: ORPHENADRINE CITRATE
     Indication: Breast cancer in situ
     Dosage: 1 DOSAGE FORM, TID
     Dates: start: 20230117
  10. ORPHENADRINE CITRATE [Suspect]
     Active Substance: ORPHENADRINE CITRATE
     Dosage: 1 DOSAGE FORM, TID
     Route: 065
     Dates: start: 20230117
  11. ORPHENADRINE CITRATE [Suspect]
     Active Substance: ORPHENADRINE CITRATE
     Dosage: 1 DOSAGE FORM, TID
     Route: 065
     Dates: start: 20230117
  12. ORPHENADRINE CITRATE [Suspect]
     Active Substance: ORPHENADRINE CITRATE
     Dosage: 1 DOSAGE FORM, TID
     Dates: start: 20230117

REACTIONS (4)
  - Angioedema [Recovered/Resolved]
  - Pruritus [Recovered/Resolved]
  - Urticaria [Recovered/Resolved]
  - Off label use [Unknown]

NARRATIVE: CASE EVENT DATE: 20230117
